FAERS Safety Report 8464180-3 (Version None)
Quarter: 2012Q2

REPORT INFORMATION
  Report Type: 
  Country: None (occurrence: None)
  Receive Date: 20120625
  Receipt Date: 20120620
  Transmission Date: 20120825
  Serious: Yes (Hospitalization)
  Sender: FDA-Public Use
  Company Number: US-BAXTER-2012BAX008153

PATIENT
  Sex: Male

DRUGS (6)
  1. DIANEAL [Suspect]
     Route: 033
     Dates: start: 20120116
  2. DIANEAL LOW CALCIUM W/ DEXTROSE 1.5% [Suspect]
     Indication: PERITONEAL DIALYSIS
     Route: 033
     Dates: start: 20120116
  3. DIANEAL LOW CALCIUM W/ DEXTROSE 1.5% [Suspect]
     Route: 033
     Dates: start: 20120116
  4. DIANEAL [Suspect]
     Indication: PERITONEAL DIALYSIS
     Route: 033
     Dates: start: 20120116
  5. DIANEAL LOW CALCIUM W/ DEXTROSE 1.5% [Suspect]
     Route: 033
     Dates: start: 20120116
  6. DIANEAL [Suspect]
     Route: 033
     Dates: start: 20120116

REACTIONS (1)
  - CHEST PAIN [None]
